FAERS Safety Report 20430746 (Version 1)
Quarter: 2022Q1

REPORT INFORMATION
  Report Type: Report from Study
  Country: FR (occurrence: FR)
  Receive Date: 20220204
  Receipt Date: 20220204
  Transmission Date: 20220424
  Serious: Yes (Hospitalization)
  Sender: FDA-Public Use
  Company Number: FR-SERVIER-S21002176

PATIENT

DRUGS (7)
  1. PEGASPARGASE [Suspect]
     Active Substance: PEGASPARGASE
     Indication: Acute lymphocytic leukaemia
     Dosage: 1020 IU, QD, D12 TO D26
     Route: 042
     Dates: start: 20201214, end: 20201228
  2. VINCRISTINE [Suspect]
     Active Substance: VINCRISTINE
     Indication: Acute lymphocytic leukaemia
     Dosage: 1.5 MG, ON INDUCTION: D8, D15, D22, D29
     Route: 042
     Dates: start: 20201219, end: 20201230
  3. VINCRISTINE [Suspect]
     Active Substance: VINCRISTINE
     Dosage: 1.3 MG, ON CONSOLIDATION: D1, D8
     Route: 042
     Dates: start: 20210118
  4. METHOTREXATE [Suspect]
     Active Substance: METHOTREXATE
     Indication: Acute lymphocytic leukaemia
     Dosage: 12 MG, CONSOLIDATION
     Route: 037
     Dates: start: 20210119
  5. DEXAMETHASONE [Suspect]
     Active Substance: DEXAMETHASONE
     Indication: Acute lymphocytic leukaemia
     Dosage: 48 MG, INDUCTION: D1 TO D7
     Route: 048
     Dates: start: 20201202, end: 20201209
  6. METHYLPREDNISOLONE [Suspect]
     Active Substance: METHYLPREDNISOLONE
     Indication: Acute lymphocytic leukaemia
     Dosage: 4.8 MG, INDUCTION: D8 TO D28
     Route: 048
     Dates: start: 20201210, end: 20210105
  7. PURINETHOL [Suspect]
     Active Substance: MERCAPTOPURINE
     Indication: Acute lymphocytic leukaemia
     Dosage: 50 MG, CONSOLIDATION: D1 TO D21
     Route: 048
     Dates: start: 20210118, end: 20210127

REACTIONS (2)
  - Intussusception [Unknown]
  - Hyperlipidaemia [Unknown]

NARRATIVE: CASE EVENT DATE: 20210128
